FAERS Safety Report 10718041 (Version 1)
Quarter: 2015Q1

REPORT INFORMATION
  Report Type: Spontaneous
  Country: GB (occurrence: GB)
  Receive Date: 20150117
  Receipt Date: 20150117
  Transmission Date: 20150721
  Serious: Yes (Other)
  Sender: FDA-Public Use
  Company Number: GB-ASTRAZENECA-2015SE02630

PATIENT
  Age: 66 Year
  Sex: Female
  Weight: 77.3 kg

DRUGS (7)
  1. NICORETTE [Concomitant]
     Active Substance: NICOTINE
     Dates: start: 20141114, end: 20141226
  2. SALBUTAMOL [Concomitant]
     Active Substance: ALBUTEROL
     Dates: start: 20141104, end: 20141202
  3. TIOTROPIUM [Concomitant]
     Active Substance: TIOTROPIUM
     Dates: start: 20141009
  4. SYMBICORT [Suspect]
     Active Substance: BUDESONIDE\FORMOTEROL FUMARATE DIHYDRATE
     Route: 055
  5. WARFARIN SODIUM. [Concomitant]
     Active Substance: WARFARIN SODIUM
     Dates: start: 20141023
  6. NICOTINE. [Concomitant]
     Active Substance: NICOTINE
     Dates: start: 20141114, end: 20141226
  7. DALTEPARIN [Concomitant]
     Active Substance: DALTEPARIN
     Dates: start: 20141016, end: 20141026

REACTIONS (6)
  - Insomnia [Recovered/Resolved]
  - Oropharyngeal pain [Recovered/Resolved]
  - Dry mouth [Recovered/Resolved]
  - Swollen tongue [Recovered/Resolved]
  - Glossodynia [Recovered/Resolved]
  - Muscle spasms [Recovered/Resolved]

NARRATIVE: CASE EVENT DATE: 20141222
